FAERS Safety Report 8853057 (Version 1)
Quarter: 2012Q4

REPORT INFORMATION
  Report Type: 
  Country: AU (occurrence: AU)
  Receive Date: 20121022
  Receipt Date: 20121022
  Transmission Date: 20130627
  Serious: Yes (Death, Hospitalization)
  Sender: FDA-Public Use
  Company Number: AU-ROCHE-1147605

PATIENT
  Age: 85 Year
  Sex: Male

DRUGS (1)
  1. LUCENTIS [Suspect]
     Indication: AGE-RELATED MACULAR DEGENERATION
     Route: 050
     Dates: start: 2008

REACTIONS (5)
  - Death [Fatal]
  - Renal failure acute [Fatal]
  - Thrombosis [Fatal]
  - Dyspnoea [Fatal]
  - Loss of consciousness [Fatal]
